FAERS Safety Report 4721887-9 (Version None)
Quarter: 2005Q3

REPORT INFORMATION
  Report Type: 
  Country: None (occurrence: None)
  Receive Date: 20050721
  Receipt Date: 20050526
  Transmission Date: 20060218
  Serious: No
  Sender: FDA-Public Use
  Company Number: US-BRISTOL-MYERS SQUIBB COMPANY-12983532

PATIENT
  Age: 71 Year
  Sex: Male
  Weight: 109 kg

DRUGS (4)
  1. COUMADIN [Suspect]
     Indication: ATRIAL FIBRILLATION
     Dates: start: 19930101
  2. COUMADIN [Suspect]
     Indication: THROMBOSIS
     Dates: start: 19930101
  3. CALCIUM GLUCONATE [Concomitant]
  4. VITAMINS [Concomitant]

REACTIONS (1)
  - STOMACH DISCOMFORT [None]
